FAERS Safety Report 8371368-9 (Version None)
Quarter: 2012Q2

REPORT INFORMATION
  Report Type: 
  Country: None (occurrence: None)
  Receive Date: 20120518
  Receipt Date: 20120514
  Transmission Date: 20120825
  Serious: Yes (Other)
  Sender: FDA-Public Use
  Company Number: PHEH2012US010112

PATIENT
  Sex: Female

DRUGS (2)
  1. METFORMIN HCL [Concomitant]
  2. DIOVAN HCT [Suspect]
     Dosage: 1 DF (320 MG VAL/25 MG HCT), QD

REACTIONS (1)
  - DIABETES MELLITUS [None]
